FAERS Safety Report 25461507 (Version 1)
Quarter: 2025Q2

REPORT INFORMATION
  Report Type: Spontaneous
  Country: ES (occurrence: ES)
  Receive Date: 20250620
  Receipt Date: 20250620
  Transmission Date: 20250716
  Serious: Yes (Life-Threatening, Hospitalization, Other)
  Sender: BAYER HEALTHCARE PHARMACEUTICALS INC.
  Company Number: None

PATIENT
  Age: 46 Year
  Sex: Male

DRUGS (4)
  1. ESTRADIOL [Interacting]
     Active Substance: ESTRADIOL
     Indication: Feminisation acquired
     Dosage: 100 ?G, QD
     Route: 062
  2. CYPROTERONE ACETATE [Suspect]
     Active Substance: CYPROTERONE ACETATE
     Indication: Feminisation acquired
     Dosage: 50 MG, BID
  3. DESMOPRESSIN [Interacting]
     Active Substance: DESMOPRESSIN
     Indication: Diabetes insipidus
     Dosage: 10 ?G, QD
     Route: 045
     Dates: start: 1995
  4. ACECLOFENAC [Interacting]
     Active Substance: ACECLOFENAC
     Indication: Back pain
     Dosage: 200 MG, QD
     Route: 048
     Dates: start: 2013

REACTIONS (12)
  - Depressed level of consciousness [Recovered/Resolved]
  - Dizziness [Recovered/Resolved]
  - Headache [Recovered/Resolved]
  - Hyponatraemia [Recovered/Resolved]
  - Lethargy [Recovered/Resolved]
  - Nausea [Recovered/Resolved]
  - Vomiting [Recovered/Resolved]
  - Drug interaction [Recovered/Resolved]
  - Visual impairment [Recovering/Resolving]
  - Optic atrophy [Unknown]
  - Meningioma [Recovered/Resolved]
  - Medication error [Unknown]

NARRATIVE: CASE EVENT DATE: 20130101
